FAERS Safety Report 9463079 (Version 3)
Quarter: 2013Q3

REPORT INFORMATION
  Report Type: Spontaneous
  Country: JP (occurrence: JP)
  Receive Date: 20130816
  Receipt Date: 20130920
  Transmission Date: 20140515
  Serious: Yes (Hospitalization, Other)
  Sender: FDA-Public Use
  Company Number: JP-OTSUKA-JP-2013-12986

PATIENT
  Age: 78 Year
  Sex: Male
  Weight: 60.1 kg

DRUGS (23)
  1. SAMSCA [Suspect]
     Indication: CARDIAC FAILURE CHRONIC
     Dosage: 7.5 MG MILLIGRAM(S), QD
     Route: 048
     Dates: start: 20130802, end: 20130802
  2. SAMSCA [Suspect]
     Dosage: 15 MG MILLIGRAM(S), QD
     Route: 048
     Dates: start: 20130803, end: 20130804
  3. CEFTRIAXONE [Suspect]
     Indication: PNEUMONIA
     Dosage: 2 G GRAM(S), QD
     Route: 041
     Dates: start: 20130802, end: 20130804
  4. GRAMALIL [Concomitant]
     Indication: DEMENTIA
     Dosage: 25 MG MILLIGRAM(S), QD
     Route: 048
     Dates: start: 20130802, end: 20130802
  5. YOKUKAN-SAN [Concomitant]
     Dosage: 1 DF DOSAGE FORM, QD
     Route: 048
     Dates: start: 20130802, end: 20130802
  6. ALOSENN [Concomitant]
     Indication: CONSTIPATION
     Dosage: 0.5 G GRAM(S), QD
     Route: 048
     Dates: start: 20130802, end: 20130802
  7. NOVO HEPARIN [Concomitant]
     Indication: THROMBOSIS PROPHYLAXIS
     Dosage: 10 KIU IU(1000S), QD
     Route: 042
     Dates: start: 20130802, end: 20130802
  8. FERROMIA [Concomitant]
     Indication: IRON DEFICIENCY ANAEMIA
     Dosage: 50 MG MILLIGRAM(S), BID
     Route: 048
     Dates: start: 20130802, end: 20130803
  9. ATARAX-P [Concomitant]
     Indication: DELIRIUM
     Dosage: 50 MG MILLIGRAM(S), QD
     Route: 042
     Dates: start: 20130802, end: 20130803
  10. GASMOTIN [Concomitant]
     Indication: GLOMERULONEPHRITIS CHRONIC
     Dosage: 5 MG MILLIGRAM(S), BID
     Route: 048
     Dates: start: 20130802, end: 20130805
  11. TAKEPRON [Concomitant]
     Indication: GASTROOESOPHAGEAL REFLUX DISEASE
     Dosage: 15 MG MILLIGRAM(S), QD
     Route: 048
     Dates: start: 20130802, end: 20130805
  12. LASIX [Concomitant]
     Indication: CARDIAC FAILURE
     Dosage: 20 MG MILLIGRAM(S), QD
     Route: 042
     Dates: start: 20130802
  13. LASIX [Concomitant]
     Dosage: 40 MG MILLIGRAM(S), DAILY DOSE
     Route: 048
     Dates: end: 20130808
  14. ZYLORIC [Concomitant]
     Indication: HYPERURICAEMIA
     Dosage: 100 MG MILLIGRAM(S), QD
     Route: 048
     Dates: start: 20130803, end: 20130803
  15. SERENACE [Concomitant]
     Indication: DELIRIUM
     Dosage: 5 MG MILLIGRAM(S), QD
     Route: 042
     Dates: start: 20130803, end: 20130803
  16. THYRADIN S [Concomitant]
     Indication: HYPOTHYROIDISM
     Dosage: 25 MCG, QD
     Route: 048
     Dates: start: 20130803, end: 20130805
  17. BAYASPIRIN [Concomitant]
     Indication: ATRIAL FIBRILLATION
     Dosage: 100 MG MILLIGRAM(S), QD
     Route: 048
     Dates: start: 20130803, end: 20130805
  18. BAYASPIRIN [Concomitant]
     Indication: PERIPHERAL ARTERIAL OCCLUSIVE DISEASE
  19. LASIX [Concomitant]
     Indication: CARDIAC FAILURE CHRONIC
     Dosage: 20 MG MILLIGRAM(S), QD
     Route: 048
     Dates: start: 20130803, end: 20130805
  20. ALDACTONE A [Concomitant]
     Indication: CARDIAC FAILURE CHRONIC
     Dosage: 25 MG MILLIGRAM(S), QD
     Route: 048
     Dates: start: 20130803, end: 20130805
  21. ADALAT CR [Concomitant]
     Indication: HYPERTENSION
     Dosage: 20 MG MILLIGRAM(S), QD
     Route: 048
     Dates: start: 20130803
  22. HANP [Concomitant]
     Indication: CARDIAC FAILURE
     Dosage: 2000 MG/ 80 ML, 1.1 ML/H
     Route: 042
     Dates: start: 20130804, end: 20130804
  23. DOBUTREX [Concomitant]
     Indication: CARDIAC FAILURE
     Dosage: 200 MG/ 10 ML, 1.8 ML/H
     Route: 042
     Dates: start: 20130805

REACTIONS (3)
  - Renal impairment [Not Recovered/Not Resolved]
  - Hepatic function abnormal [Recovering/Resolving]
  - Drug ineffective [Unknown]
